FAERS Safety Report 8265400-0 (Version None)
Quarter: 2012Q2

REPORT INFORMATION
  Report Type: 
  Country: None (occurrence: None)
  Receive Date: 20120406
  Receipt Date: 20120402
  Transmission Date: 20120825
  Serious: Yes (Hospitalization)
  Sender: FDA-Public Use
  Company Number: US-PFIZER INC-2012083467

PATIENT
  Sex: Male

DRUGS (1)
  1. TORISEL [Suspect]
     Indication: RENAL CANCER
     Dosage: UNK, WEEKLY
     Dates: start: 20120120, end: 20120309

REACTIONS (15)
  - EATING DISORDER [None]
  - HEADACHE [None]
  - NAUSEA [None]
  - DYSPNOEA [None]
  - COUGH [None]
  - MALAISE [None]
  - GAIT DISTURBANCE [None]
  - SPEECH DISORDER [None]
  - FATIGUE [None]
  - MASTICATION DISORDER [None]
  - DECREASED APPETITE [None]
  - EYE DISORDER [None]
  - DRUG INTOLERANCE [None]
  - DYSPHAGIA [None]
  - INCREASED UPPER AIRWAY SECRETION [None]
